FAERS Safety Report 4370841-8 (Version None)
Quarter: 2004Q2

REPORT INFORMATION
  Report Type: 
  Country: None (occurrence: None)
  Receive Date: 20040602
  Receipt Date: 20040602
  Transmission Date: 20050107
  Serious: Yes (Other)
  Sender: FDA-Public Use
  Company Number: None

PATIENT
  Age: 64 Year
  Sex: Female
  Weight: 71.7 kg

DRUGS (1)
  1. SIMVASTATIN [Suspect]

REACTIONS (2)
  - NAUSEA [None]
  - VOMITING [None]
